FAERS Safety Report 13670484 (Version 1)
Quarter: 2017Q2

REPORT INFORMATION
  Report Type: Spontaneous
  Country: FR (occurrence: FR)
  Receive Date: 20170620
  Receipt Date: 20170620
  Transmission Date: 20170830
  Serious: Yes (Other)
  Sender: FDA-Public Use
  Company Number: FR-SA-2017SA109174

PATIENT
  Sex: Female

DRUGS (2)
  1. ZOLPIDEM [Suspect]
     Active Substance: ZOLPIDEM\ZOLPIDEM TARTRATE
     Route: 065
  2. LARGACTIL [Suspect]
     Active Substance: CHLORPROMAZINE
     Route: 065

REACTIONS (2)
  - Amniotic fluid volume decreased [Recovered/Resolved]
  - Exposure during pregnancy [Unknown]
